FAERS Safety Report 9774453 (Version 2)
Quarter: 2014Q1

REPORT INFORMATION
  Report Type: Spontaneous
  Country: US (occurrence: US)
  Receive Date: 20131220
  Receipt Date: 20140212
  Transmission Date: 20141002
  Serious: No
  Sender: FDA-Public Use
  Company Number: US-TEVA-451871USA

PATIENT
  Age: 19 Year
  Sex: Female
  Weight: 75.36 kg

DRUGS (1)
  1. PARAGARD 380A [Suspect]
     Indication: CONTRACEPTION
     Route: 015
     Dates: start: 20131111, end: 20131216

REACTIONS (2)
  - Muscle spasms [Unknown]
  - Device expulsion [Recovered/Resolved]
